FAERS Safety Report 9139965 (Version 5)
Quarter: 2015Q3

REPORT INFORMATION
  Report Type: Spontaneous
  Country: US (occurrence: US)
  Receive Date: 20130305
  Receipt Date: 20150713
  Transmission Date: 20151125
  Serious: Yes (Hospitalization, Other)
  Sender: FDA-Public Use
  Company Number: US-BAYER-2013-027549

PATIENT
  Age: 29 Year
  Sex: Female
  Weight: 88.44 kg

DRUGS (4)
  1. VIOXX [Concomitant]
     Active Substance: ROFECOXIB
  2. MOTRIN [Concomitant]
     Active Substance: IBUPROFEN
  3. YASMIN [Suspect]
     Active Substance: DROSPIRENONE\ETHINYL ESTRADIOL
     Dosage: UNK
     Dates: start: 20011129, end: 20021022
  4. SYNTHROID [Concomitant]
     Active Substance: LEVOTHYROXINE SODIUM
     Indication: HYPOTHYROIDISM
     Dosage: UNK
     Dates: start: 2001

REACTIONS (8)
  - Varicose vein [None]
  - Injury [Recovered/Resolved]
  - Peripheral swelling [Recovered/Resolved]
  - Emotional distress [None]
  - Deep vein thrombosis [Recovered/Resolved]
  - Joint injury [Recovered/Resolved]
  - Pain [Recovered/Resolved]
  - Deep vein thrombosis [Recovered/Resolved]

NARRATIVE: CASE EVENT DATE: 200210
